FAERS Safety Report 14482057 (Version 2)
Quarter: 2018Q1

REPORT INFORMATION
  Report Type: Spontaneous
  Country: CH (occurrence: CH)
  Receive Date: 20180202
  Receipt Date: 20180323
  Transmission Date: 20180509
  Serious: Yes (Disabling, Other)
  Sender: FDA-Public Use
  Company Number: CH-REGENERON PHARMACEUTICALS, INC.-2018-13095

PATIENT

DRUGS (2)
  1. EYLEA [Suspect]
     Active Substance: AFLIBERCEPT
     Dosage: 0.5 (NO UNIT PROVIDED), ONCE
     Route: 031
     Dates: start: 20170505, end: 20170505
  2. EYLEA [Suspect]
     Active Substance: AFLIBERCEPT
     Indication: CHOROIDAL NEOVASCULARISATION
     Dosage: 0.5 (NO UNITS PROVIDED), ONCE
     Route: 031
     Dates: start: 20170324, end: 20170324

REACTIONS (2)
  - Macular hole [Not Recovered/Not Resolved]
  - Macular degeneration [Unknown]
